FAERS Safety Report 14008433 (Version 1)
Quarter: 2017Q3

REPORT INFORMATION
  Report Type: Spontaneous
  Country: US (occurrence: US)
  Receive Date: 20170925
  Receipt Date: 20170925
  Transmission Date: 20171128
  Serious: No
  Sender: FDA-Public Use
  Company Number: US-MYLANLABS-2017M1027798

PATIENT
  Sex: Female
  Weight: 49.89 kg

DRUGS (1)
  1. MERCAPTAMINE [Suspect]
     Active Substance: CYSTEAMINE
     Indication: CYSTINOSIS
     Dosage: UNK, QID
     Route: 048

REACTIONS (1)
  - Laboratory test abnormal [Unknown]
